FAERS Safety Report 5222432-4 (Version None)
Quarter: 2007Q1

REPORT INFORMATION
  Report Type: 
  Country: None (occurrence: None)
  Receive Date: 20070129
  Receipt Date: 20070129
  Transmission Date: 20070707
  Serious: Yes (Hospitalization, Other)
  Sender: FDA-Public Use
  Company Number: PHHO2004ZA07870

PATIENT
  Age: 22 Year
  Sex: Female
  Weight: 61.2 kg

DRUGS (2)
  1. ORAL CONTRACEPTIVE NOS [Concomitant]
     Dates: start: 19990101, end: 20040501
  2. TEGASEROD VS PLACEBO [Suspect]
     Indication: DYSPEPSIA
     Dosage: 6 MG, BID
     Route: 048
     Dates: start: 20040430, end: 20040515

REACTIONS (6)
  - ABDOMINAL PAIN LOWER [None]
  - CYST REMOVAL [None]
  - DERMOID CYST OF OVARY [None]
  - LAPAROTOMY [None]
  - TERATOMA BENIGN [None]
  - TUMOUR EXCISION [None]
